FAERS Safety Report 4533113-4 (Version None)
Quarter: 2004Q4

REPORT INFORMATION
  Report Type: 
  Country: None (occurrence: None)
  Receive Date: 20041206
  Receipt Date: 20041021
  Transmission Date: 20050328
  Serious: Yes (Hospitalization)
  Sender: FDA-Public Use
  Company Number: USA041081868

PATIENT
  Sex: Female

DRUGS (2)
  1. CYMBALTA [Suspect]
     Indication: DEPRESSION
     Dates: start: 20041001, end: 20041001
  2. LORAZEPAM [Concomitant]

REACTIONS (2)
  - INTENTIONAL OVERDOSE [None]
  - TACHYCARDIA [None]
